FAERS Safety Report 4356558-4 (Version None)
Quarter: 2004Q2

REPORT INFORMATION
  Report Type: 
  Country: None (occurrence: None)
  Receive Date: 20040507
  Receipt Date: 20040420
  Transmission Date: 20050107
  Serious: Yes (Death, Hospitalization)
  Sender: FDA-Public Use
  Company Number: EWC040438896

PATIENT
  Age: 22 Year
  Sex: Female

DRUGS (4)
  1. VINCRISTINE SULFATE [Suspect]
     Indication: ACUTE LYMPHOCYTIC LEUKAEMIA
  2. DAUNORUBICIN HCL [Concomitant]
  3. PREDNISOLONE [Concomitant]
  4. ELSPAR [Concomitant]

REACTIONS (2)
  - ACINETOBACTER INFECTION [None]
  - SEPSIS [None]
